FAERS Safety Report 4834858-9 (Version None)
Quarter: 2005Q4

REPORT INFORMATION
  Report Type: 
  Country: None (occurrence: None)
  Receive Date: 20051115
  Receipt Date: 20051031
  Transmission Date: 20060501
  Serious: Yes (Death, Life-Threatening, Hospitalization, Other)
  Sender: FDA-Public Use
  Company Number: MC200500927

PATIENT
  Age: 72 Year
  Sex: Male

DRUGS (1)
  1. ANGIOMAX [Suspect]
     Dosage: 15.8 ML, INTRAVENOUS
     Route: 042

REACTIONS (9)
  - CARDIAC ARREST [None]
  - HAEMATOMA [None]
  - HYPOPERFUSION [None]
  - INCORRECT DOSE ADMINISTERED [None]
  - MULTI-ORGAN FAILURE [None]
  - OVERDOSE [None]
  - POST PROCEDURAL HAEMORRHAGE [None]
  - SCROTAL HAEMATOMA [None]
  - SHOCK HAEMORRHAGIC [None]
